FAERS Safety Report 13413004 (Version 2)
Quarter: 2017Q2

REPORT INFORMATION
  Report Type: Spontaneous
  Country: US (occurrence: US)
  Receive Date: 20170407
  Receipt Date: 20170414
  Transmission Date: 20170830
  Serious: Yes (Other)
  Sender: FDA-Public Use
  Company Number: US-AMGEN-USASP2017048812

PATIENT
  Age: 61 Year
  Sex: Female

DRUGS (7)
  1. ENBREL [Suspect]
     Active Substance: ETANERCEPT
     Indication: PSORIATIC ARTHROPATHY
     Dosage: UNK UNK, QWK
     Route: 065
  2. METHOTREXATE. [Concomitant]
     Active Substance: METHOTREXATE
  3. ARAVA [Concomitant]
     Active Substance: LEFLUNOMIDE
  4. HUMIRA [Suspect]
     Active Substance: ADALIMUMAB
     Indication: PRODUCT USED FOR UNKNOWN INDICATION
     Route: 065
  5. ENBREL [Suspect]
     Active Substance: ETANERCEPT
     Dosage: UNK
     Route: 065
     Dates: start: 2017
  6. DICLOFENAC [Concomitant]
     Active Substance: DICLOFENAC
  7. MELOXICAM. [Concomitant]
     Active Substance: MELOXICAM

REACTIONS (31)
  - Osteoarthritis [Not Recovered/Not Resolved]
  - Sleep apnoea syndrome [Recovering/Resolving]
  - Injection site pain [Unknown]
  - Spinal operation [Unknown]
  - Foot operation [Unknown]
  - Pollakiuria [Recovering/Resolving]
  - Scab [Not Recovered/Not Resolved]
  - Cerebral disorder [Not Recovered/Not Resolved]
  - Eczema [Not Recovered/Not Resolved]
  - Shoulder operation [Unknown]
  - Bladder disorder [Unknown]
  - Overweight [Not Recovered/Not Resolved]
  - Mobility decreased [Recovering/Resolving]
  - Bone pain [Not Recovered/Not Resolved]
  - Psoriasis [Recovering/Resolving]
  - Dry eye [Not Recovered/Not Resolved]
  - Skin disorder [Recovered/Resolved]
  - Impaired healing [Recovering/Resolving]
  - Genito-pelvic pain/penetration disorder [Unknown]
  - Spinal disorder [Not Recovered/Not Resolved]
  - Nerve injury [Not Recovered/Not Resolved]
  - Sinusitis [Unknown]
  - Post procedural complication [Not Recovered/Not Resolved]
  - Urticaria [Not Recovered/Not Resolved]
  - Urinary tract infection [Recovering/Resolving]
  - Paraesthesia [Unknown]
  - Intentional product misuse [Unknown]
  - Emotional distress [Not Recovered/Not Resolved]
  - Stress [Unknown]
  - Cystitis [Not Recovered/Not Resolved]
  - Skin mass [Unknown]

NARRATIVE: CASE EVENT DATE: 2011
